FAERS Safety Report 17581897 (Version 1)
Quarter: 2020Q1

REPORT INFORMATION
  Report Type: Spontaneous
  Country: US (occurrence: US)
  Receive Date: 20200325
  Receipt Date: 20200325
  Transmission Date: 20200409
  Serious: Yes (Hospitalization, Other)
  Sender: FDA-Public Use
  Company Number: US-ASTRAZENECA-2020SE41055

PATIENT
  Age: 24699 Day
  Sex: Male
  Weight: 75.3 kg

DRUGS (2)
  1. BYDUREON [Suspect]
     Active Substance: EXENATIDE
     Indication: TYPE 2 DIABETES MELLITUS
     Route: 058
  2. BYDUREON BCISE [Suspect]
     Active Substance: EXENATIDE
     Indication: TYPE 2 DIABETES MELLITUS
     Route: 058

REACTIONS (7)
  - Wrong technique in device usage process [Unknown]
  - Cataract [Unknown]
  - Blood glucose decreased [Unknown]
  - Weight decreased [Unknown]
  - Visual impairment [Unknown]
  - Decreased appetite [Unknown]
  - Extra dose administered [Unknown]

NARRATIVE: CASE EVENT DATE: 2016
